FAERS Safety Report 9733647 (Version 1)
Quarter: 2013Q4

REPORT INFORMATION
  Report Type: Spontaneous
  Country: CA (occurrence: CA)
  Receive Date: 20131205
  Receipt Date: 20131205
  Transmission Date: 20140711
  Serious: Yes (Other)
  Sender: FDA-Public Use
  Company Number: CHPA2013CA018060

PATIENT
  Age: 85 Year
  Sex: Female

DRUGS (2)
  1. ACETAMINOPHEN (PARACETAMOL) [Suspect]
     Dosage: UNK, UNK
  2. VOLTAREN EMULGEL ^NOVARTIS^ [Concomitant]
     Dosage: UNK, UNK

REACTIONS (1)
  - International normalised ratio increased [Recovered/Resolved]
